FAERS Safety Report 24840501 (Version 2)
Quarter: 2025Q1

REPORT INFORMATION
  Report Type: Spontaneous
  Country: JP (occurrence: JP)
  Receive Date: 20250114
  Receipt Date: 20250128
  Transmission Date: 20250408
  Serious: Yes (Death)
  Sender: PFIZER
  Company Number: JP-PFIZER INC-PV202500002208

PATIENT
  Age: 7 Decade
  Sex: Male
  Weight: 70 kg

DRUGS (1)
  1. TRIAZOLAM [Suspect]
     Active Substance: TRIAZOLAM

REACTIONS (2)
  - Toxicity to various agents [Fatal]
  - Occupational exposure to product [Fatal]
